FAERS Safety Report 6375464-7 (Version None)
Quarter: 2009Q3

REPORT INFORMATION
  Report Type: 
  Country: None (occurrence: None)
  Receive Date: 20090924
  Receipt Date: 20090915
  Transmission Date: 20100115
  Serious: Yes (Life-Threatening)
  Sender: FDA-Public Use
  Company Number: IT-PFIZER INC-2009263622

PATIENT
  Age: 69 Year

DRUGS (12)
  1. BLEOMYCIN SULFATE [Suspect]
     Indication: HODGKIN'S DISEASE
     Dosage: 15 MG, CYCLIC
     Route: 042
     Dates: start: 20090424, end: 20090508
  2. DOXORUBICIN EBEWE [Suspect]
     Indication: HODGKIN'S DISEASE
     Dosage: 40 MG, CYCLIC
     Route: 042
     Dates: start: 20090424, end: 20090508
  3. DACARBAZINE [Suspect]
     Indication: HODGKIN'S DISEASE
     Dosage: 600 MG, CYCLIC
     Route: 042
     Dates: start: 20090424, end: 20090508
  4. VINBLASTINE SULFATE [Suspect]
     Indication: HODGKIN'S DISEASE
     Dosage: 10 MG, CYCLIC
     Route: 042
     Dates: start: 20090424, end: 20090508
  5. OMEPRAZOLE [Concomitant]
  6. METOPROLOL [Concomitant]
  7. SELEPARINA [Concomitant]
  8. ALOXI [Concomitant]
  9. MYCOSTATIN [Concomitant]
  10. LASIX [Concomitant]
  11. STILNOX [Concomitant]
  12. LEVOXACIN [Concomitant]

REACTIONS (2)
  - CARDIAC ARREST [None]
  - VENTRICULAR FIBRILLATION [None]
